FAERS Safety Report 8480145-X (Version None)
Quarter: 2012Q2

REPORT INFORMATION
  Report Type: 
  Country: None (occurrence: None)
  Receive Date: 20120629
  Receipt Date: 20120627
  Transmission Date: 20120825
  Serious: Yes (Hospitalization)
  Sender: FDA-Public Use
  Company Number: ES-AMGEN-ESPSP2012039075

PATIENT
  Age: 80 Year
  Sex: Female

DRUGS (3)
  1. ASPIRIN [Concomitant]
     Indication: TRANSIENT ISCHAEMIC ATTACK
     Dosage: UNK
  2. VELCADE [Concomitant]
     Dosage: UNK
  3. NPLATE [Suspect]
     Indication: PRODUCT USED FOR UNKNOWN INDICATION
     Dosage: 100 MUG, ONE TIME DOSE
     Route: 042
     Dates: start: 20120625, end: 20120625

REACTIONS (3)
  - MEDICATION ERROR [None]
  - ERYTHEMA [None]
  - NERVOUSNESS [None]
